FAERS Safety Report 18733965 (Version 3)
Quarter: 2021Q1

REPORT INFORMATION
  Report Type: Spontaneous
  Country: US (occurrence: US)
  Receive Date: 20210113
  Receipt Date: 20210322
  Transmission Date: 20210419
  Serious: No
  Sender: FDA-Public Use
  Company Number: US-BIOVITRUM-2021US0288

PATIENT
  Sex: Female
  Weight: 6 kg

DRUGS (9)
  1. SYNAGIS [Suspect]
     Active Substance: PALIVIZUMAB
     Indication: RESPIRATORY FAILURE
  2. SYNAGIS [Suspect]
     Active Substance: PALIVIZUMAB
     Indication: HYPOXIA
  3. SYNAGIS [Suspect]
     Active Substance: PALIVIZUMAB
     Indication: PREMATURE BABY
     Dosage: 100MG/1ML VL LIQUID
     Route: 030
  4. EPINEPHRINE HCL [Concomitant]
     Active Substance: EPINEPHRINE
  5. MULTIVITAMINS WITH IRON [Concomitant]
     Active Substance: IRON\VITAMINS
  6. ACETAMINOPHEN. [Concomitant]
     Active Substance: ACETAMINOPHEN
     Dosage: FOR INFANTS
  7. SYNAGIS [Suspect]
     Active Substance: PALIVIZUMAB
     Indication: HYPERCAPNIA
  8. IBUPROFEN. [Concomitant]
     Active Substance: IBUPROFEN
     Dosage: FOR INFANTS
  9. SYNAGIS [Suspect]
     Active Substance: PALIVIZUMAB
     Indication: NEONATAL RESPIRATORY DISTRESS SYNDROME

REACTIONS (1)
  - Ear infection [Recovered/Resolved]
